FAERS Safety Report 7558315-4 (Version None)
Quarter: 2011Q2

REPORT INFORMATION
  Report Type: 
  Country: None (occurrence: None)
  Receive Date: 20110620
  Receipt Date: 20110610
  Transmission Date: 20111010
  Serious: Yes (Hospitalization, Other)
  Sender: FDA-Public Use
  Company Number: US-ELI_LILLY_AND_COMPANY-US201106003905

PATIENT
  Age: 55 Year
  Sex: Male

DRUGS (2)
  1. EFFIENT [Suspect]
     Indication: PERCUTANEOUS CORONARY INTERVENTION
     Dosage: 60 MG, UNK
     Dates: start: 20101001, end: 20101001
  2. EFFIENT [Suspect]
     Dosage: 10 MG, MAINTENANCE DOSE
     Dates: end: 20110610

REACTIONS (1)
  - IN-STENT CORONARY ARTERY RESTENOSIS [None]
